FAERS Safety Report 5779095-9 (Version None)
Quarter: 2008Q2

REPORT INFORMATION
  Report Type: 
  Country: None (occurrence: None)
  Receive Date: 20080619
  Receipt Date: 20080229
  Transmission Date: 20081010
  Serious: Yes (Death)
  Sender: FDA-Public Use
  Company Number: US-ROCHE-550808

PATIENT
  Age: 77 Year

DRUGS (5)
  1. CLONAZEPAM [Suspect]
     Indication: DRUG USE FOR UNKNOWN INDICATION
     Route: 048
  2. TRICYCLIC ANTIDEPRESSANT (TCAD) [Suspect]
     Indication: DRUG USE FOR UNKNOWN INDICATION
     Route: 048
  3. OXYCODONE AND ACETAMINOPHEN [Suspect]
     Indication: DRUG USE FOR UNKNOWN INDICATION
     Route: 048
  4. OXYCODONE AND ACETAMINOPHEN [Suspect]
     Route: 048
  5. UNSPECIFIED DRUGS [Suspect]
     Indication: DRUG USE FOR UNKNOWN INDICATION
     Route: 048

REACTIONS (1)
  - OVERDOSE [None]
